FAERS Safety Report 18117237 (Version 1)
Quarter: 2020Q3

REPORT INFORMATION
  Report Type: Other
  Country: US (occurrence: US)
  Receive Date: 20200806
  Receipt Date: 20200806
  Transmission Date: 20201103
  Serious: Yes (Death)
  Sender: FDA-Public Use
  Company Number: US-ROCHE-2651399

PATIENT
  Sex: Female

DRUGS (18)
  1. COLACE [Concomitant]
     Active Substance: DOCUSATE SODIUM
     Dosage: TAKE 100 MG BY MOUTH 2 TIMES DAILY IF NEEDED.
     Route: 048
  2. ASPIRIN. [Concomitant]
     Active Substance: ASPIRIN
     Dosage: TAKE 325 MG BY MOUTH ONCE DAILY WITH A MEAL.
     Route: 048
  3. DIFLUCAN [Concomitant]
     Active Substance: FLUCONAZOLE
     Dosage: TAKE 1 TABLET BY MOUTH ONCE DAILY
     Route: 048
  4. FEMARA [Concomitant]
     Active Substance: LETROZOLE
     Dosage: TAKE 1 TABLET BY MOUTH ONCE DAILY.
     Route: 048
  5. CHERATUSSIN AC [Concomitant]
     Active Substance: CODEINE PHOSPHATE\GUAIFENESIN
     Dosage: TAKE 5 ML BY MOUTH EVERY 10 MINUTES IF NEEDED
     Route: 048
  6. NEURONTIN [Concomitant]
     Active Substance: GABAPENTIN
     Dosage: TAKE 1 ORAL IN AM, 1 AT NOON AND 2 AT BEDTIME
     Route: 048
  7. ALBUTEROL HFA [Concomitant]
     Active Substance: ALBUTEROL SULFATE
     Dosage: INHALE 2 PUFFS BY MOUTH EVERY 4 HOURS IF NEEDED
     Route: 048
  8. DUONEB [Concomitant]
     Active Substance: ALBUTEROL SULFATE\IPRATROPIUM BROMIDE
     Dosage: INHALE 3 ML VIA A NEBULIZER EVERY 6 HOURS IF NEEDED
     Route: 055
  9. ESBRIET [Suspect]
     Active Substance: PIRFENIDONE
     Indication: IDIOPATHIC PULMONARY FIBROSIS
     Dosage: TAKE 1 TABLET BY MOUTH 3 TIMES A DAY WITH MEALS
     Route: 048
  10. PRIMROSE OIL [Concomitant]
     Dosage: TAKES 2,000 MG BY MOUTH DAILY
     Route: 048
  11. COZAAR [Concomitant]
     Active Substance: LOSARTAN POTASSIUM
     Dosage: TAKE 1 TABLET BY MOUTH ONCE DAILY.
     Route: 048
  12. PRILOSEC [Concomitant]
     Active Substance: OMEPRAZOLE MAGNESIUM
     Dosage: TAKE 1 CAPSULE BY MOUTH ONCE DAILY BEFORE A MEAL.
     Route: 048
  13. ELAVIL [AMITRIPTYLINE] [Concomitant]
     Dosage: TAKE 1 TABLET AT BEDTIME
  14. TENORMIN [Concomitant]
     Active Substance: ATENOLOL
     Dosage: TAKE 1 TABLET BY MOUTH ONCE DAILY
     Route: 048
  15. FLAXSEED [Concomitant]
     Active Substance: FLAX SEED
     Dosage: TAKE 1 TABLET BY MOUTH ONCE DAILY
     Route: 048
  16. SYNTHROID [Concomitant]
     Active Substance: LEVOTHYROXINE SODIUM
     Dosage: TAKE 1 TABLET BY MOUTH BEFORE BREAKFAST
     Route: 048
  17. PROVENTIL [Concomitant]
     Active Substance: ALBUTEROL
     Dosage: INHALE 3 ML VIA A NEBULLZER EVERY 4 HOURS IF NEEDED,
  18. ZOCOR [Concomitant]
     Active Substance: SIMVASTATIN
     Dosage: TAKE 1 TABLET BY MOUTH AT BEDTIME
     Route: 048

REACTIONS (1)
  - Lung disorder [Fatal]
